FAERS Safety Report 5328169-5 (Version None)
Quarter: 2007Q2

REPORT INFORMATION
  Report Type: 
  Country: None (occurrence: None)
  Receive Date: 20070517
  Receipt Date: 20070508
  Transmission Date: 20071010
  Serious: Yes (Hospitalization, Other)
  Sender: FDA-Public Use
  Company Number: JP-ABBOTT-07P-087-0367661-00

PATIENT
  Age: 61 Year
  Sex: Female
  Weight: 50 kg

DRUGS (9)
  1. CLARITHROMYCIN [Suspect]
     Indication: BRONCHITIS
     Route: 048
     Dates: start: 20070112, end: 20070112
  2. CLARITHROMYCIN [Suspect]
     Route: 048
     Dates: start: 20070113, end: 20070113
  3. PL [Suspect]
     Indication: PHARYNGITIS
     Route: 048
     Dates: start: 20070112, end: 20070113
  4. CALONAL [Suspect]
     Indication: PYREXIA
     Route: 048
     Dates: start: 20070112, end: 20070115
  5. SERRAPEPTASE [Concomitant]
     Indication: BRONCHITIS
     Route: 048
     Dates: start: 20070112, end: 20070113
  6. CHERRY BARK EXTRACT [Concomitant]
     Indication: BRONCHITIS
     Route: 048
     Dates: start: 20070112, end: 20070114
  7. APRICOT KERNEL WATER [Concomitant]
     Indication: BRONCHITIS
     Route: 048
     Dates: start: 20070112, end: 20070112
  8. SENEGA [Concomitant]
     Indication: BRONCHITIS
     Route: 048
     Dates: start: 20070112, end: 20070114
  9. HUSCODE [Concomitant]
     Indication: BRONCHITIS
     Route: 048
     Dates: start: 20070112, end: 20070114

REACTIONS (13)
  - BACTERIAL INFECTION [None]
  - CONJUNCTIVITIS [None]
  - COUGH [None]
  - HAEMOPHILUS INFECTION [None]
  - HEPATIC FUNCTION ABNORMAL [None]
  - HEPATITIS ACUTE [None]
  - INFLAMMATION [None]
  - INSOMNIA [None]
  - OCULAR HYPERAEMIA [None]
  - ORAL INTAKE REDUCED [None]
  - OVERDOSE [None]
  - PNEUMONIA [None]
  - RASH [None]
